FAERS Safety Report 20779486 (Version 1)
Quarter: 2022Q2

REPORT INFORMATION
  Report Type: Spontaneous
  Country: US (occurrence: None)
  Receive Date: 20220429
  Receipt Date: 20220429
  Transmission Date: 20220721
  Serious: Yes (Other)
  Sender: FDA-Public Use
  Company Number: None

PATIENT
  Age: 46 Year
  Sex: Female

DRUGS (2)
  1. ALOIN\ATROPINE SULFATE\CATHINE\DIAZEPAM\LIOTHYRONINE [Suspect]
     Active Substance: ALOIN\ATROPINE SULFATE\CATHINE\DIAZEPAM\LIOTHYRONINE
     Dates: start: 20211101, end: 20220428
  2. LIOTHYRONINE [Suspect]
     Active Substance: LIOTHYRONINE

REACTIONS (1)
  - Thyroid function test abnormal [None]

NARRATIVE: CASE EVENT DATE: 20211101
